FAERS Safety Report 20422084 (Version 2)
Quarter: 2022Q1

REPORT INFORMATION
  Report Type: Spontaneous
  Country: JP (occurrence: JP)
  Receive Date: 20220203
  Receipt Date: 20220210
  Transmission Date: 20220424
  Serious: Yes (Hospitalization)
  Sender: FDA-Public Use
  Company Number: JP-JNJFOC-20220157778

PATIENT
  Age: 35 Year
  Sex: Female
  Weight: 55 kg

DRUGS (6)
  1. STELARA [Suspect]
     Active Substance: USTEKINUMAB
     Indication: Colitis ulcerative
     Dosage: USTEKINUMAB (GENETICAL RECOMBINATION):130MG
     Route: 042
     Dates: start: 20211210
  2. STELARA [Suspect]
     Active Substance: USTEKINUMAB
     Dosage: USTEKINUMAB (GENETICAL RECOMBINATION):45MG
     Route: 058
  3. INFLIXIMAB [Suspect]
     Active Substance: INFLIXIMAB
     Indication: Colitis ulcerative
     Dosage: INFLIXIMAB(GENETICAL RECOMBINATION) [BIOSIMILAR 1]
     Route: 065
     Dates: end: 20210122
  4. LIALDA [Suspect]
     Active Substance: MESALAMINE
     Indication: Colitis ulcerative
     Route: 048
  5. GANCICLOVIR [Suspect]
     Active Substance: GANCICLOVIR
     Indication: Cytomegalovirus infection
     Route: 041
  6. IMURAN [Concomitant]
     Active Substance: AZATHIOPRINE
     Indication: Colitis ulcerative

REACTIONS (2)
  - Cytomegalovirus colitis [Unknown]
  - White blood cell count decreased [Unknown]

NARRATIVE: CASE EVENT DATE: 20220124
